FAERS Safety Report 6297428-4 (Version None)
Quarter: 2009Q3

REPORT INFORMATION
  Report Type: 
  Country: None (occurrence: None)
  Receive Date: 20090805
  Receipt Date: 20090729
  Transmission Date: 20100115
  Serious: No
  Sender: FDA-Public Use
  Company Number: US-BAYER-200919114NA

PATIENT
  Age: 42 Year
  Sex: Male

DRUGS (2)
  1. ULTRAVIST 300 [Suspect]
     Indication: COMPUTERISED TOMOGRAM THORAX
     Dosage: TOTAL DAILY DOSE: 120 ML  UNIT DOSE: 150 ML
     Route: 042
     Dates: start: 20081106, end: 20081106
  2. UNKNOWN CONTRAST [Concomitant]
     Route: 048
     Dates: start: 20081106, end: 20081106

REACTIONS (3)
  - PERIORBITAL OEDEMA [None]
  - URTICARIA [None]
  - VOMITING [None]
